FAERS Safety Report 11786045 (Version 2)
Quarter: 2015Q4

REPORT INFORMATION
  Report Type: Spontaneous
  Country: JP (occurrence: JP)
  Receive Date: 20151130
  Receipt Date: 20151214
  Transmission Date: 20160305
  Serious: Yes (Hospitalization, Other)
  Sender: FDA-Public Use
  Company Number: JP-PFIZER INC-2015305710

PATIENT
  Age: 70 Year
  Sex: Male
  Weight: 64.5 kg

DRUGS (3)
  1. CALBLOCK [Concomitant]
     Active Substance: AZELNIDIPINE
     Dosage: 16 MG, 1X/DAY
     Route: 048
     Dates: start: 20150703
  2. SUTENT [Suspect]
     Active Substance: SUNITINIB MALATE
     Dosage: 50 MG, DAILY, 4 WEEKS ON 2 WEEKS OFF
     Route: 048
     Dates: end: 20151028
  3. SUTENT [Suspect]
     Active Substance: SUNITINIB MALATE
     Indication: RENAL CELL CARCINOMA
     Dosage: 50 MG, DAILY, 4 WEEKS ON 2 WEEKS OFF
     Route: 048
     Dates: start: 20150811

REACTIONS (2)
  - Cytopenia [Recovering/Resolving]
  - Platelet count decreased [Recovered/Resolved]

NARRATIVE: CASE EVENT DATE: 20150909
